FAERS Safety Report 23452607 (Version 1)
Quarter: 2024Q1

REPORT INFORMATION
  Report Type: Spontaneous
  Country: US (occurrence: None)
  Receive Date: 20240129
  Receipt Date: 20240129
  Transmission Date: 20240410
  Serious: Yes (unspecified)
  Sender: FDA-Public Use
  Company Number: None

PATIENT
  Age: 38 Year
  Sex: Female
  Weight: 74.5 kg

DRUGS (1)
  1. RITUXAN [Suspect]
     Active Substance: RITUXIMAB

REACTIONS (4)
  - Hyperhidrosis [None]
  - Dyspnoea [None]
  - Throat irritation [None]
  - Incorrect dose administered [None]

NARRATIVE: CASE EVENT DATE: 20240126
